FAERS Safety Report 5091533-6 (Version None)
Quarter: 2006Q3

REPORT INFORMATION
  Report Type: 
  Country: None (occurrence: None)
  Receive Date: 20060829
  Receipt Date: 20060817
  Transmission Date: 20061208
  Serious: Yes (Other)
  Sender: FDA-Public Use
  Company Number: US-BRISTOL-MYERS SQUIBB COMPANY-13481692

PATIENT
  Age: 53 Year
  Sex: Female
  Weight: 86 kg

DRUGS (2)
  1. MONOPRIL [Suspect]
     Indication: HYPERTENSION
     Dates: start: 19960101
  2. METHYLDOPA [Concomitant]
     Dosage: HAS TAKING THIS DRUG FOR 10 YEARS.
     Dates: start: 19960101

REACTIONS (2)
  - BLOOD PRESSURE INCREASED [None]
  - DRUG INEFFECTIVE [None]
